FAERS Safety Report 9113050 (Version 2)
Quarter: 2013Q2

REPORT INFORMATION
  Report Type: Spontaneous
  Country: US (occurrence: US)
  Receive Date: 20130211
  Receipt Date: 20130410
  Transmission Date: 20140414
  Serious: Yes (Death, Other)
  Sender: FDA-Public Use
  Company Number: US-BANPHARM-20130640

PATIENT
  Age: 38 Year
  Sex: Female

DRUGS (6)
  1. VALPROIC ACID UNKNOWN PRODUCT [Suspect]
     Dosage: 500 MG, QD THEN BID,
     Route: 048
  2. PERPHENAZINE [Concomitant]
  3. CYCLOBENZAPRINE [Concomitant]
     Indication: NECK PAIN
     Dosage: 10 MG
  4. SERTRALINE [Concomitant]
     Dosage: 100 MG, QD,
  5. OPIOIDS [Concomitant]
  6. TRICYCLIC ANTIDEPRESSANTS [Concomitant]

REACTIONS (12)
  - Brain oedema [Fatal]
  - Hyperammonaemic encephalopathy [Fatal]
  - Hyperammonaemia [Fatal]
  - Brain herniation [Fatal]
  - Status epilepticus [Fatal]
  - Aspiration [Fatal]
  - Blood creatine phosphokinase increased [Fatal]
  - Agitation [Fatal]
  - Neck pain [Not Recovered/Not Resolved]
  - Abnormal behaviour [Fatal]
  - Road traffic accident [Not Recovered/Not Resolved]
  - Amino acid metabolism disorder [Fatal]
